FAERS Safety Report 5092764-1 (Version None)
Quarter: 2006Q3

REPORT INFORMATION
  Report Type: 
  Country: None (occurrence: None)
  Receive Date: 20060830
  Receipt Date: 20060821
  Transmission Date: 20061208
  Serious: Yes (Death, Hospitalization)
  Sender: FDA-Public Use
  Company Number: US-ABBOTT-06P-163-0341326-00

PATIENT
  Sex: Male
  Weight: 118 kg

DRUGS (3)
  1. HUMIRA [Suspect]
     Indication: RHEUMATOID ARTHRITIS
     Route: 058
     Dates: start: 20050101
  2. PREDNISONE TAB [Concomitant]
     Indication: RHEUMATOID ARTHRITIS
  3. LYCRA LYRICA [Concomitant]
     Indication: FEELING OF RELAXATION

REACTIONS (3)
  - FALL [None]
  - HIP FRACTURE [None]
  - INFECTION [None]
